FAERS Safety Report 8055870 (Version 8)
Quarter: 2013Q1

REPORT INFORMATION
  Report Type: Spontaneous
  Country: US (occurrence: US)
  Receive Date: 20110726
  Receipt Date: 20121112
  Transmission Date: 20140127
  Serious: Yes (Hospitalization, Other)
  Sender: FDA-Public Use
  Company Number: US-009507513-1107USA03275

PATIENT
  Sex: 0

DRUGS (5)
  1. FOSAMAX [Suspect]
     Indication: OSTEOPOROSIS
     Dosage: 70 MG, UNK
     Route: 048
     Dates: start: 20010921, end: 200611
  2. FOSAMAX [Suspect]
     Indication: OSTEOPOROSIS PROPHYLAXIS
  3. MK-9278 [Concomitant]
     Dosage: UNK UNK, QD
     Dates: start: 2006
  4. FOSAMAX PLUS D [Suspect]
     Indication: OSTEOPOROSIS
     Dosage: 70 MG/2800
     Route: 048
     Dates: start: 20070801, end: 200909
  5. FOSAMAX [Suspect]
     Indication: OSTEOPOROSIS
     Route: 048
     Dates: start: 20080614

REACTIONS (47)
  - Infection [Unknown]
  - Volvulus [Unknown]
  - Renal failure acute [Unknown]
  - Femur fracture [Recovering/Resolving]
  - Low turnover osteopathy [Unknown]
  - Impaired healing [Not Recovered/Not Resolved]
  - Nasal septum deviation [Unknown]
  - Nasal disorder [Unknown]
  - Nasal dryness [Unknown]
  - Age-related macular degeneration [Unknown]
  - Mycotic allergy [Unknown]
  - Seasonal allergy [Unknown]
  - Osteoarthritis [Unknown]
  - Patellofemoral pain syndrome [Unknown]
  - Frustration [Unknown]
  - Cerebral small vessel ischaemic disease [Unknown]
  - Gait disturbance [Unknown]
  - Slow speech [Unknown]
  - Spinal compression fracture [Unknown]
  - Arthropathy [Unknown]
  - Sciatica [Unknown]
  - Intervertebral disc degeneration [Not Recovered/Not Resolved]
  - Facet joint syndrome [Not Recovered/Not Resolved]
  - Spondylolisthesis [Not Recovered/Not Resolved]
  - Contusion [Unknown]
  - Asthenia [Unknown]
  - Head injury [Unknown]
  - Confusional state [Unknown]
  - Memory impairment [Unknown]
  - Coronary artery disease [Unknown]
  - Oropharyngeal pain [Unknown]
  - Fall [Unknown]
  - Rib fracture [Unknown]
  - Kyphosis [Unknown]
  - Osteoporosis [Unknown]
  - Anxiety [Unknown]
  - Asthenia [Unknown]
  - Scoliosis [Unknown]
  - Herpes zoster [Unknown]
  - Herpes zoster [Not Recovered/Not Resolved]
  - Post herpetic neuralgia [Not Recovered/Not Resolved]
  - Osteoarthritis [Unknown]
  - Pain in extremity [Unknown]
  - Drug ineffective [Unknown]
  - Rhinitis perennial [Unknown]
  - Acute sinusitis [Unknown]
  - Device failure [Unknown]
